FAERS Safety Report 16771719 (Version 1)
Quarter: 2019Q4

REPORT INFORMATION
  Report Type: Spontaneous
  Country: US (occurrence: US)
  Receive Date: 20190903
  Receipt Date: 20190903
  Transmission Date: 20200122
  Serious: No
  Sender: FDA-Public Use
  Company Number: None

PATIENT
  Age: 11 Year
  Sex: Male
  Weight: 49.5 kg

DRUGS (1)
  1. TOPIRAMATE. [Suspect]
     Active Substance: TOPIRAMATE
     Indication: MIGRAINE
     Dosage: ?          QUANTITY:2 TABLET(S);?
     Route: 048
     Dates: start: 20190801

REACTIONS (2)
  - Hallucination, visual [None]
  - Poverty of speech [None]

NARRATIVE: CASE EVENT DATE: 20190903
